FAERS Safety Report 6419658-0 (Version None)
Quarter: 2009Q4

REPORT INFORMATION
  Report Type: 
  Country: None (occurrence: None)
  Receive Date: 20091029
  Receipt Date: 20091027
  Transmission Date: 20100525
  Serious: Yes (Death)
  Sender: FDA-Public Use
  Company Number: A0813676A

PATIENT
  Age: 82 Year
  Sex: Male
  Weight: 90.5 kg

DRUGS (1)
  1. AVANDIA [Suspect]
     Dosage: 4MG PER DAY
     Route: 048
     Dates: start: 20040601, end: 20060328

REACTIONS (4)
  - CORONARY ARTERY DISEASE [None]
  - DEATH [None]
  - MYOCARDIAL INFARCTION [None]
  - OEDEMA [None]
